FAERS Safety Report 7134616-9 (Version None)
Quarter: 2010Q4

REPORT INFORMATION
  Report Type: 
  Country: None (occurrence: None)
  Receive Date: 20101203
  Receipt Date: 20101114
  Transmission Date: 20110411
  Serious: Yes (Other)
  Sender: FDA-Public Use
  Company Number: PHHY2010DE79585

PATIENT
  Age: 51 Year
  Sex: Female

DRUGS (1)
  1. FEMARA [Suspect]
     Indication: BREAST CANCER
     Dosage: 1 DF DAILY
     Route: 048
     Dates: start: 20101101

REACTIONS (3)
  - DRUG HYPERSENSITIVITY [None]
  - PHARYNGITIS [None]
  - SWELLING FACE [None]
